FAERS Safety Report 22540430 (Version 1)
Quarter: 2023Q2

REPORT INFORMATION
  Report Type: Report from Study
  Country: US (occurrence: US)
  Receive Date: 20230609
  Receipt Date: 20230609
  Transmission Date: 20230722
  Serious: Yes (Death, Hospitalization)
  Sender: FDA-Public Use
  Company Number: US-ABBVIE-5282460

PATIENT
  Age: 72 Year
  Sex: Male
  Weight: 66.224 kg

DRUGS (15)
  1. VENCLEXTA [Suspect]
     Active Substance: VENETOCLAX
     Indication: Chronic lymphocytic leukaemia
     Dosage: FORM STRENGTH: 100MG?BY MOUTH EVERY DAY ON WEEK 2
     Route: 048
  2. VENCLEXTA [Suspect]
     Active Substance: VENETOCLAX
     Indication: Chronic lymphocytic leukaemia
     Dosage: FORM STRENGTH: 100MG?DURATION TEXT: BY MOUTH EVERY DAY ON WEEK 3
     Route: 048
  3. VENCLEXTA [Suspect]
     Active Substance: VENETOCLAX
     Indication: Chronic lymphocytic leukaemia
     Dosage: FORM STRENGTH: 50 MG?BY MOUTH EVERY DAY ON WEEK 3
     Route: 048
  4. VENCLEXTA [Suspect]
     Active Substance: VENETOCLAX
     Indication: Chronic lymphocytic leukaemia
     Dosage: 2 TABLET(S) BY MOUTH DAILY WITH BREAKFAST?FORM STRENGTH: 10MG?DURATION TEXT: BY MOUTH EVERY DAY O...
     Route: 048
     Dates: start: 202206
  5. VENCLEXTA [Suspect]
     Active Substance: VENETOCLAX
     Indication: Chronic lymphocytic leukaemia
     Dosage: FORM STRENGTH: 100MG
     Route: 048
  6. VENCLEXTA [Suspect]
     Active Substance: VENETOCLAX
     Indication: Chronic lymphocytic leukaemia
     Dosage: 2 TABLET(S) BY MOUTH DAILY WITH BREAKFAST? DISCONTINUED?DAILY WEEK 4.
     Route: 048
  7. VESICARE [Concomitant]
     Active Substance: SOLIFENACIN SUCCINATE
     Indication: Product used for unknown indication
     Dosage: 5 MG TAB
     Route: 048
  8. FLOMAX [Concomitant]
     Active Substance: TAMSULOSIN HYDROCHLORIDE
     Indication: Product used for unknown indication
     Dosage: 0.4MG CAPSULE
     Route: 048
  9. PROSCAR [Concomitant]
     Active Substance: FINASTERIDE
     Indication: Product used for unknown indication
     Dosage: 5 MG TABLET
     Route: 048
  10. DESYREL [Concomitant]
     Active Substance: TRAZODONE HYDROCHLORIDE
     Indication: Product used for unknown indication
     Dosage: 150 MG TABLET
     Route: 048
  11. ASPIRIN [Concomitant]
     Active Substance: ASPIRIN
     Indication: Product used for unknown indication
     Dosage: 81 MG TABLET
  12. FOLATE SODIUM [Concomitant]
     Active Substance: FOLATE SODIUM
     Indication: Product used for unknown indication
     Dosage: 1 MG TABLET
     Route: 048
  13. ZESTORETIC [Concomitant]
     Active Substance: HYDROCHLOROTHIAZIDE\LISINOPRIL
     Indication: Product used for unknown indication
     Dosage: 10-12.5 MG PER TABLET
     Route: 048
  14. LIPITOR [Concomitant]
     Active Substance: ATORVASTATIN CALCIUM
     Indication: Product used for unknown indication
     Dosage: 40 MG TABLET
     Route: 048
  15. VITAMIN B12 [Concomitant]
     Active Substance: CYANOCOBALAMIN
     Indication: Product used for unknown indication
     Dosage: 1000 MCG
     Route: 048

REACTIONS (2)
  - Death [Fatal]
  - Respiratory distress [Unknown]

NARRATIVE: CASE EVENT DATE: 20230519
